FAERS Safety Report 19651513 (Version 1)
Quarter: 2021Q3

REPORT INFORMATION
  Report Type: Spontaneous
  Country: DE (occurrence: DE)
  Receive Date: 20210803
  Receipt Date: 20210803
  Transmission Date: 20211014
  Serious: Yes (Other)
  Sender: FDA-Public Use
  Company Number: DE-TEVA-2021-DE-1938803

PATIENT
  Age: 58 Year
  Sex: Male

DRUGS (2)
  1. METOPROLOL. [Concomitant]
     Active Substance: METOPROLOL
     Dosage: 47.5DOSAGEFORM
     Route: 048
     Dates: start: 20210303
  2. AMLODIPINE [Suspect]
     Active Substance: AMLODIPINE BESYLATE
     Dosage: 10MILLIGRAM
     Route: 048
     Dates: start: 20210303

REACTIONS (3)
  - Rash erythematous [Not Recovered/Not Resolved]
  - Blister [Not Recovered/Not Resolved]
  - Stevens-Johnson syndrome [Not Recovered/Not Resolved]
